FAERS Safety Report 5401866-9 (Version None)
Quarter: 2007Q3

REPORT INFORMATION
  Report Type: 
  Country: None (occurrence: None)
  Receive Date: 20070731
  Receipt Date: 20070717
  Transmission Date: 20080115
  Serious: Yes (Other)
  Sender: FDA-Public Use
  Company Number: US-ELI_LILLY_AND_COMPANY-US200707002609

PATIENT
  Age: 59 Year
  Sex: Female

DRUGS (4)
  1. FORTEO [Suspect]
     Indication: OSTEOPOROSIS
     Dosage: UNK, DAILY (1/D)
     Dates: start: 20070501, end: 20070707
  2. FORTEO [Suspect]
     Dosage: UNK, QOD
     Dates: end: 20070707
  3. CALCIUM CHLORIDE [Concomitant]
     Dosage: 500 MG, 3/D
  4. VITAMIN D [Concomitant]
     Dosage: 50000 U, MONTHLY (1/M)

REACTIONS (19)
  - ABDOMINAL PAIN [None]
  - BACK PAIN [None]
  - BLOOD CALCIUM INCREASED [None]
  - BONE PAIN [None]
  - DECREASED APPETITE [None]
  - EYE PAIN [None]
  - FEAR [None]
  - FEELING HOT [None]
  - HEADACHE [None]
  - HEPATIC ENZYME INCREASED [None]
  - HYPERHIDROSIS [None]
  - INJECTION SITE PAIN [None]
  - MOBILITY DECREASED [None]
  - MUSCLE SPASMS [None]
  - MUSCULOSKELETAL CHEST PAIN [None]
  - NAUSEA [None]
  - NECK PAIN [None]
  - PAIN [None]
  - TOOTHACHE [None]
